FAERS Safety Report 17934316 (Version 1)
Quarter: 2020Q2

REPORT INFORMATION
  Report Type: Spontaneous
  Country: BR (occurrence: BR)
  Receive Date: 20200624
  Receipt Date: 20200624
  Transmission Date: 20200714
  Serious: Yes (Other)
  Sender: FDA-Public Use
  Company Number: BR-LUPIN PHARMACEUTICALS INC.-2020-03006

PATIENT
  Age: 25 Year
  Sex: Female
  Weight: 76 kg

DRUGS (1)
  1. FLUOXETINE HYDROCHLORIDE 20 MG CAPSULE [Suspect]
     Active Substance: FLUOXETINE HYDROCHLORIDE
     Indication: PANIC DISORDER
     Dosage: 1 DOSAGE FORM, QD
     Route: 048
     Dates: start: 20200512, end: 20200513

REACTIONS (3)
  - Anxiety [Recovered/Resolved]
  - Tremor [Recovered/Resolved]
  - Feeling hot [Not Recovered/Not Resolved]

NARRATIVE: CASE EVENT DATE: 20200512
